FAERS Safety Report 9129292 (Version 2)
Quarter: 2013Q1

REPORT INFORMATION
  Report Type: Report from Study
  Country: US (occurrence: US)
  Receive Date: 20130125
  Receipt Date: 20130307
  Transmission Date: 20140127
  Serious: Yes (Life-Threatening, Hospitalization)
  Sender: FDA-Public Use
  Company Number: US-US-EMD SERONO, INC.-7188594

PATIENT
  Sex: Male
  Weight: 49 kg

DRUGS (3)
  1. REBIF [Suspect]
     Indication: MULTIPLE SCLEROSIS
     Dates: start: 20081010, end: 201212
  2. MICARDIS [Concomitant]
     Indication: HYPERTENSION
  3. SOLU-MEDROL [Concomitant]
     Indication: MULTIPLE SCLEROSIS RELAPSE

REACTIONS (2)
  - Myocardial infarction [Recovering/Resolving]
  - Multiple sclerosis relapse [Unknown]
